FAERS Safety Report 8347715-0 (Version None)
Quarter: 2012Q2

REPORT INFORMATION
  Report Type: 
  Country: None (occurrence: None)
  Receive Date: 20120509
  Receipt Date: 20120502
  Transmission Date: 20120825
  Serious: No
  Sender: FDA-Public Use
  Company Number: US-B.I. PHARMACEUTICALS,INC./RIDGEFIELD-2012-BP-06322BP

PATIENT
  Sex: Female

DRUGS (3)
  1. SPIRIVA [Suspect]
     Indication: EMPHYSEMA
     Dosage: 18 MCG
     Route: 055
     Dates: start: 20120329, end: 20120401
  2. ZOLOFT [Concomitant]
     Indication: POSTPARTUM DEPRESSION
     Dosage: 50 MG
     Route: 048
  3. ALBUTEROL [Concomitant]
     Indication: EMPHYSEMA
     Route: 055

REACTIONS (3)
  - FEELING ABNORMAL [None]
  - COUGH [None]
  - DYSPNOEA [None]
